FAERS Safety Report 9789474 (Version 2)
Quarter: 2014Q1

REPORT INFORMATION
  Report Type: Spontaneous
  Country: US (occurrence: US)
  Receive Date: 20131231
  Receipt Date: 20140317
  Transmission Date: 20141002
  Serious: Yes (Other)
  Sender: FDA-Public Use
  Company Number: US-AMGEN-USASP2013090929

PATIENT
  Age: 62 Year
  Sex: Female
  Weight: 73.47 kg

DRUGS (5)
  1. ENBREL [Suspect]
     Indication: RHEUMATOID ARTHRITIS
     Dosage: 50 MG, ONCE A WEEK
     Route: 058
     Dates: start: 201309
  2. SEROTONIN [Concomitant]
     Indication: DEPRESSION
     Dosage: 50 MG, QD
     Route: 048
     Dates: start: 20131109
  3. AZULFIDINE [Concomitant]
     Indication: RHEUMATOID ARTHRITIS
     Dosage: 500 MG, BID, 2 TABLETS
     Route: 048
     Dates: start: 20130406
  4. DICLOFENAC [Concomitant]
     Indication: OSTEOARTHRITIS
     Dosage: 4 G, TID
     Dates: start: 201210
  5. PREDNISONE [Concomitant]
     Indication: RHEUMATOID ARTHRITIS
     Dosage: 5 MG, UNK, SHORT COURSE
     Route: 048
     Dates: start: 201304

REACTIONS (8)
  - Surgery [Unknown]
  - Bedridden [Not Recovered/Not Resolved]
  - Arthralgia [Recovered/Resolved]
  - Pain in extremity [Not Recovered/Not Resolved]
  - Local swelling [Not Recovered/Not Resolved]
  - Joint swelling [Not Recovered/Not Resolved]
  - Incorrect product storage [Unknown]
  - Injection site pain [Not Recovered/Not Resolved]
